FAERS Safety Report 16150743 (Version 1)
Quarter: 2019Q2

REPORT INFORMATION
  Report Type: Spontaneous
  Country: US (occurrence: US)
  Receive Date: 20190402
  Receipt Date: 20190402
  Transmission Date: 20190711
  Serious: Yes (Life-Threatening, Hospitalization)
  Sender: FDA-Public Use
  Company Number: None

PATIENT
  Age: 34 Year
  Sex: Female
  Weight: 57.15 kg

DRUGS (2)
  1. XARELTO [Suspect]
     Active Substance: RIVAROXABAN
     Indication: PROTEIN S DECREASED
     Dates: start: 20180101, end: 20180612
  2. XARELTO [Suspect]
     Active Substance: RIVAROXABAN
     Indication: PROTEIN C DECREASED
     Dates: start: 20180101, end: 20180612

REACTIONS (4)
  - Nerve injury [None]
  - Loss of employment [None]
  - Visual impairment [None]
  - Cerebrovascular accident [None]

NARRATIVE: CASE EVENT DATE: 20180612
